FAERS Safety Report 14032560 (Version 2)
Quarter: 2017Q4

REPORT INFORMATION
  Report Type: Spontaneous
  Country: US (occurrence: US)
  Receive Date: 20171002
  Receipt Date: 20171018
  Transmission Date: 20180321
  Serious: Yes (Hospitalization, Other)
  Sender: FDA-Public Use
  Company Number: US-TAKEDA-2017TUS020286

PATIENT
  Age: 15 Year
  Sex: Male
  Weight: 45.35 kg

DRUGS (4)
  1. CYPROHEPTADINE. [Concomitant]
     Active Substance: CYPROHEPTADINE
     Dosage: 4 MG, UNK
  2. QUILLIVANT XR [Concomitant]
     Active Substance: METHYLPHENIDATE HYDROCHLORIDE
     Indication: ATTENTION DEFICIT/HYPERACTIVITY DISORDER
     Dosage: UNK
     Route: 048
     Dates: start: 2017
  3. METHOTREXATE. [Suspect]
     Active Substance: METHOTREXATE
     Indication: CROHN^S DISEASE
     Dosage: 20 MG, 1/WEEK
     Route: 065
     Dates: start: 200908
  4. ENTYVIO [Suspect]
     Active Substance: VEDOLIZUMAB
     Indication: CROHN^S DISEASE
     Dosage: 300 MG, UNK
     Route: 042
     Dates: start: 20170119

REACTIONS (4)
  - Viral infection [Recovered/Resolved]
  - Drug administered to patient of inappropriate age [Unknown]
  - Weight decreased [Unknown]
  - Pneumonia necrotising [Not Recovered/Not Resolved]

NARRATIVE: CASE EVENT DATE: 20170802
